FAERS Safety Report 22129748 (Version 1)
Quarter: 2023Q1

REPORT INFORMATION
  Report Type: Spontaneous
  Country: US (occurrence: US)
  Receive Date: 20230323
  Receipt Date: 20230323
  Transmission Date: 20230418
  Serious: No
  Sender: FDA-Public Use
  Company Number: US-MICRO LABS LIMITED-ML2023-01308

PATIENT
  Age: 75 Year
  Sex: Female
  Weight: 72.640 kg

DRUGS (2)
  1. DORZOLAMIDE\TIMOLOL [Suspect]
     Active Substance: DORZOLAMIDE\TIMOLOL
     Indication: Glaucoma
     Dosage: 22.3 MG/6.8 MG PER ML ?DOSE: ONE DROP IN RIGHT EYE
     Route: 047
  2. AVASTIN [Concomitant]
     Active Substance: BEVACIZUMAB
     Indication: Macular degeneration
     Dosage: SHE HAS BEEN TAKING AVASTIN INJECTION FOR MACULAR DEGENERATION EVERY SIX WEEKS

REACTIONS (2)
  - Eye irritation [Not Recovered/Not Resolved]
  - Eyelid irritation [Not Recovered/Not Resolved]

NARRATIVE: CASE EVENT DATE: 20230201
